FAERS Safety Report 14630394 (Version 1)
Quarter: 2018Q1

REPORT INFORMATION
  Report Type: Spontaneous
  Country: ES (occurrence: ES)
  Receive Date: 20180313
  Receipt Date: 20180313
  Transmission Date: 20180509
  Serious: Yes (Life-Threatening, Hospitalization)
  Sender: FDA-Public Use
  Company Number: ES-JNJFOC-20180303610

PATIENT
  Age: 55 Year
  Sex: Male

DRUGS (3)
  1. IBUPROFENO (1769A) [Suspect]
     Active Substance: IBUPROFEN
     Route: 048
  2. IBUPROFENO (1769A) [Suspect]
     Active Substance: IBUPROFEN
     Indication: BACK PAIN
     Route: 048
     Dates: start: 20160222, end: 20160302
  3. SALBUTAMOL [Concomitant]
     Active Substance: ALBUTEROL
     Indication: CHRONIC OBSTRUCTIVE PULMONARY DISEASE
     Route: 055
     Dates: start: 20120411

REACTIONS (1)
  - Upper gastrointestinal haemorrhage [Recovered/Resolved]

NARRATIVE: CASE EVENT DATE: 20160302
